FAERS Safety Report 7496036-7 (Version None)
Quarter: 2011Q2

REPORT INFORMATION
  Report Type: 
  Country: None (occurrence: None)
  Receive Date: 20110520
  Receipt Date: 20110520
  Transmission Date: 20111010
  Serious: Yes (Life-Threatening)
  Sender: FDA-Public Use
  Company Number: None

PATIENT
  Age: 62 Year
  Sex: Female

DRUGS (1)
  1. HUMULIN R [Suspect]

REACTIONS (3)
  - MEDICATION ERROR [None]
  - HYPOGLYCAEMIA [None]
  - OVERDOSE [None]
